FAERS Safety Report 4587878-6 (Version None)
Quarter: 2005Q1

REPORT INFORMATION
  Report Type: 
  Country: None (occurrence: None)
  Receive Date: 20050125
  Receipt Date: 20041112
  Transmission Date: 20050727
  Serious: No
  Sender: FDA-Public Use
  Company Number: USA040979385

PATIENT
  Age: 49 Year
  Sex: Female

DRUGS (2)
  1. FORTEO [Suspect]
     Indication: OSTEOPOROSIS
     Dates: start: 20040101
  2. EVISTA [Suspect]
     Indication: OSTEOPOROSIS
     Dates: start: 20040701

REACTIONS (9)
  - ARTHRALGIA [None]
  - FALL [None]
  - FOOT FRACTURE [None]
  - JOINT SWELLING [None]
  - PAIN IN EXTREMITY [None]
  - PHARYNGOLARYNGEAL PAIN [None]
  - PROTEIN URINE PRESENT [None]
  - THROAT IRRITATION [None]
  - WRIST FRACTURE [None]
